FAERS Safety Report 25355025 (Version 1)
Quarter: 2025Q2

REPORT INFORMATION
  Report Type: Spontaneous
  Country: US (occurrence: US)
  Receive Date: 20250524
  Receipt Date: 20250524
  Transmission Date: 20250717
  Serious: Yes (Hospitalization, Other)
  Sender: AUROBINDO
  Company Number: US-AUROBINDO-AUR-APL-2023-013854

PATIENT
  Age: 21 Year
  Sex: Female

DRUGS (8)
  1. COLCHICINE [Suspect]
     Active Substance: COLCHICINE
     Indication: Myopericarditis
     Route: 065
  2. COLCHICINE [Suspect]
     Active Substance: COLCHICINE
     Indication: Atrial flutter
  3. DIGOXIN [Suspect]
     Active Substance: DIGOXIN
     Indication: Myopericarditis
     Route: 065
  4. DIGOXIN [Suspect]
     Active Substance: DIGOXIN
     Indication: Atrial flutter
  5. ASPIRIN [Suspect]
     Active Substance: ASPIRIN
     Indication: Myopericarditis
     Route: 065
  6. ASPIRIN [Suspect]
     Active Substance: ASPIRIN
     Indication: Atrial flutter
  7. DILTIAZEM [Suspect]
     Active Substance: DILTIAZEM
     Indication: Myopericarditis
     Route: 065
  8. DILTIAZEM [Suspect]
     Active Substance: DILTIAZEM
     Indication: Atrial flutter

REACTIONS (1)
  - Drug ineffective [Unknown]
